FAERS Safety Report 6552864-3 (Version None)
Quarter: 2010Q1

REPORT INFORMATION
  Report Type: 
  Country: None (occurrence: None)
  Receive Date: 20100126
  Receipt Date: 20100115
  Transmission Date: 20100710
  Serious: Yes (Hospitalization)
  Sender: FDA-Public Use
  Company Number: JP-GILEAD-E2B_00000557

PATIENT
  Sex: Male

DRUGS (5)
  1. HEPSERA [Suspect]
     Indication: DRUG USE FOR UNKNOWN INDICATION
     Dosage: 10MG PER DAY
     Dates: start: 20040401
  2. HEPSERA [Suspect]
     Dosage: 10MG THREE TIMES PER WEEK
     Dates: start: 20091201
  3. ZEFIX [Concomitant]
     Indication: DRUG USE FOR UNKNOWN INDICATION
     Dosage: 100MG PER DAY
     Route: 048
     Dates: start: 20040101
  4. URSO 250 [Concomitant]
     Indication: DRUG USE FOR UNKNOWN INDICATION
     Route: 048
     Dates: start: 20040101, end: 20090701
  5. ROCALTROL [Concomitant]
     Indication: DRUG USE FOR UNKNOWN INDICATION
     Dosage: 1MCG TWICE PER DAY
     Route: 048
     Dates: start: 20091001

REACTIONS (2)
  - FANCONI SYNDROME [None]
  - TUBULOINTERSTITIAL NEPHRITIS [None]
